FAERS Safety Report 6007652-3 (Version None)
Quarter: 2008Q4

REPORT INFORMATION
  Report Type: 
  Country: None (occurrence: None)
  Receive Date: 20081217
  Receipt Date: 20080428
  Transmission Date: 20090506
  Serious: No
  Sender: FDA-Public Use
  Company Number: US-ASTRAZENECA-2008UW06329

PATIENT
  Age: 54 Year
  Sex: Male
  Weight: 93.9 kg

DRUGS (4)
  1. CRESTOR [Suspect]
     Route: 048
     Dates: start: 20080301
  2. ATENOLOL [Concomitant]
  3. ANUSOL HC [Concomitant]
     Dosage: 2.5%
  4. TED STOCKINGS KNEE HIGH [Concomitant]

REACTIONS (6)
  - CHILLS [None]
  - DIARRHOEA [None]
  - HYPERHIDROSIS [None]
  - MYALGIA [None]
  - PYREXIA [None]
  - VIRAL INFECTION [None]
